FAERS Safety Report 9515468 (Version 1)
Quarter: 2013Q3

REPORT INFORMATION
  Report Type: Spontaneous
  Country: US (occurrence: US)
  Receive Date: 20130911
  Receipt Date: 20130911
  Transmission Date: 20140515
  Serious: Yes (Other)
  Sender: FDA-Public Use
  Company Number: US-PFIZER INC-2013261462

PATIENT
  Sex: Male

DRUGS (2)
  1. LYRICA [Suspect]
     Indication: NEUROPATHY PERIPHERAL
     Dosage: UNK
  2. DILANTIN-125 [Suspect]
     Indication: EPILEPSY
     Dosage: UNK

REACTIONS (2)
  - Epilepsy [Unknown]
  - Therapeutic response unexpected [Unknown]
